FAERS Safety Report 16329891 (Version 4)
Quarter: 2021Q3

REPORT INFORMATION
  Report Type: Report from Study
  Country: GB (occurrence: GB)
  Receive Date: 20190520
  Receipt Date: 20210702
  Transmission Date: 20211014
  Serious: Yes (Life-Threatening, Other)
  Sender: FDA-Public Use
  Company Number: GB-VIIV HEALTHCARE LIMITED-GB2019GSK087408

PATIENT
  Age: 50 Year
  Sex: Male
  Weight: 96 kg

DRUGS (13)
  1. CETRIZINE [Concomitant]
     Active Substance: CETIRIZINE HYDROCHLORIDE
     Dosage: 10 MG MAX VARIABLE, AS REQUIRED
     Route: 048
     Dates: start: 20180501
  2. KIVEXA [Concomitant]
     Active Substance: ABACAVIR SULFATE\LAMIVUDINE
     Dosage: 1 DF(TABLET) (600+300 MG), QD
     Route: 048
     Dates: start: 20140911
  3. PARACETAMOL [Concomitant]
     Active Substance: ACETAMINOPHEN
     Dosage: 2 G MAX VARIABLE, AS REQUIRED
     Route: 048
     Dates: start: 20150112
  4. ACYCLOVIR. [Concomitant]
     Active Substance: ACYCLOVIR
     Dosage: 800 MG MAX VARIABLE, AS REQUIRED
     Route: 048
     Dates: start: 20010701
  5. ZOPICLONE [Concomitant]
     Active Substance: ZOPICLONE
     Dosage: 3.75 MG, VARIABLE, AS REQUIRED
     Route: 048
     Dates: start: 20190507
  6. EZETIMIBE. [Concomitant]
     Active Substance: EZETIMIBE
     Dosage: 10 MG, UNK
     Route: 048
     Dates: start: 20181115
  7. HYCOSAN [Concomitant]
     Dosage: VARIABLE DROPS NUMBER, NO MAX, AS REQUIRED
     Route: 061
     Dates: start: 20180620
  8. MARAVIROC [Suspect]
     Active Substance: MARAVIROC
     Indication: HIV INFECTION
     Dosage: 300 MG, UNK
     Route: 048
     Dates: start: 20180427
  9. NEVIRAPINE. [Concomitant]
     Active Substance: NEVIRAPINE
     Dosage: 400 MG, UNK
     Route: 048
     Dates: start: 20020301
  10. PROPRANOLOL [Concomitant]
     Active Substance: PROPRANOLOL HYDROCHLORIDE
     Dosage: 40 MG, UNK
     Route: 048
     Dates: start: 20150112
  11. NAPROXEN. [Concomitant]
     Active Substance: NAPROXEN
     Dosage: 1 G MAX VARIABLE, AS REQUIRED
     Route: 048
     Dates: start: 20150112
  12. IBUPROFEN. [Concomitant]
     Active Substance: IBUPROFEN
     Dosage: 1200 MG,  MAX VARIABLE, AS REQUIRED
     Route: 048
     Dates: start: 20150112
  13. METFORMIN HYDROCHLORIDE (NON?GSK COMPARATOR) [Suspect]
     Active Substance: METFORMIN HYDROCHLORIDE
     Indication: HIV INFECTION
     Dosage: 500 MG, UNK
     Route: 048
     Dates: start: 20180427

REACTIONS (1)
  - Adenocarcinoma pancreas [Not Recovered/Not Resolved]

NARRATIVE: CASE EVENT DATE: 20190514
